FAERS Safety Report 4344402-0 (Version None)
Quarter: 2004Q2

REPORT INFORMATION
  Report Type: 
  Country: None (occurrence: None)
  Receive Date: 20040419
  Receipt Date: 20040409
  Transmission Date: 20050107
  Serious: Yes (Other)
  Sender: FDA-Public Use
  Company Number: 2004208560GB

PATIENT
  Sex: Male

DRUGS (1)
  1. ZYVOX [Suspect]
     Indication: SEPSIS
     Dosage: ORAL
     Route: 048

REACTIONS (2)
  - SIDEROBLASTIC ANAEMIA [None]
  - THROMBOCYTOPENIA [None]
